FAERS Safety Report 21982001 (Version 3)
Quarter: 2023Q2

REPORT INFORMATION
  Report Type: Spontaneous
  Country: US (occurrence: US)
  Receive Date: 20230213
  Receipt Date: 20230508
  Transmission Date: 20230721
  Serious: Yes (Hospitalization)
  Sender: FDA-Public Use
  Company Number: US-BIOVITRUM-2023US01979

PATIENT
  Age: 66 Year
  Sex: Male

DRUGS (1)
  1. KINERET [Suspect]
     Active Substance: ANAKINRA
     Indication: Rheumatoid arthritis
     Dosage: ONCE A DAY
     Route: 058
     Dates: start: 20190710

REACTIONS (2)
  - Urinary tract disorder [Unknown]
  - Rheumatoid arthritis [Unknown]
